FAERS Safety Report 24842881 (Version 1)
Quarter: 2025Q1

REPORT INFORMATION
  Report Type: Report from Study
  Country: US (occurrence: US)
  Receive Date: 20250115
  Receipt Date: 20250115
  Transmission Date: 20250408
  Serious: No
  Sender: HRA PHARMA
  Company Number: US-ORG100014127-2024000003

PATIENT
  Age: 24 Year
  Sex: Male

DRUGS (9)
  1. LYSODREN [Suspect]
     Active Substance: MITOTANE
     Indication: Adrenal gland cancer
     Dosage: 01 TABLETS TWICE A DAY FOR 7 DAY
     Route: 048
     Dates: start: 20231212
  2. LYSODREN [Suspect]
     Active Substance: MITOTANE
     Indication: Adrenal gland cancer
     Dosage: 02 TABLETS TWICE A DAY FOR 7 DAY
     Route: 048
  3. LYSODREN [Suspect]
     Active Substance: MITOTANE
     Indication: Adrenal gland cancer
     Dosage: 03 TABLETS TWICE A DAY
     Route: 048
  4. ASPIRIN CHW 81MG [Concomitant]
     Indication: Product used for unknown indication
  5. ELIQUIS [Concomitant]
     Active Substance: APIXABAN
     Indication: Product used for unknown indication
  6. LABETALOL TAB 100MG [Concomitant]
     Indication: Product used for unknown indication
  7. LORAZEPAM TAB 0.5MG [Concomitant]
     Indication: Product used for unknown indication
  8. PANTOPRAZOLE TAB 40MG [Concomitant]
     Indication: Product used for unknown indication
  9. PROCHLORPER TAB 5MG [Concomitant]
     Indication: Product used for unknown indication

REACTIONS (2)
  - Arthralgia [Not Recovered/Not Resolved]
  - Headache [Not Recovered/Not Resolved]
